FAERS Safety Report 20771435 (Version 1)
Quarter: 2022Q2

REPORT INFORMATION
  Report Type: Report from Study
  Country: US (occurrence: US)
  Receive Date: 20220429
  Receipt Date: 20220429
  Transmission Date: 20220721
  Serious: Yes (Death, Other)
  Sender: FDA-Public Use
  Company Number: US-GILEAD-2022-0579905

PATIENT
  Age: 61 Year
  Sex: Female

DRUGS (1)
  1. SACITUZUMAB GOVITECAN [Suspect]
     Active Substance: SACITUZUMAB GOVITECAN
     Indication: Triple negative breast cancer
     Dosage: 1 DOSE
     Route: 065
     Dates: start: 20220119, end: 20220119

REACTIONS (1)
  - Death [Fatal]

NARRATIVE: CASE EVENT DATE: 20220225
